FAERS Safety Report 6699599-4 (Version None)
Quarter: 2010Q2

REPORT INFORMATION
  Report Type: 
  Country: None (occurrence: None)
  Receive Date: 20100428
  Receipt Date: 20100426
  Transmission Date: 20101027
  Serious: Yes (Death, Hospitalization)
  Sender: FDA-Public Use
  Company Number: US-BIOGENIDEC-2010BI013573

PATIENT
  Age: 54 Year
  Sex: Male

DRUGS (1)
  1. TYSABRI [Suspect]
     Indication: MULTIPLE SCLEROSIS
     Route: 042
     Dates: start: 20081114, end: 20100406

REACTIONS (2)
  - ACUTE MYOCARDIAL INFARCTION [None]
  - PULMONARY OEDEMA [None]
